FAERS Safety Report 5797814-2 (Version None)
Quarter: 2008Q3

REPORT INFORMATION
  Report Type: 
  Country: None (occurrence: None)
  Receive Date: 20080702
  Receipt Date: 20080625
  Transmission Date: 20090109
  Serious: Yes (Hospitalization)
  Sender: FDA-Public Use
  Company Number: JP-JNJFOC-20080603939

PATIENT
  Sex: Female
  Weight: 66 kg

DRUGS (12)
  1. INFLIXIMAB, RECOMBINANT [Suspect]
     Route: 042
  2. INFLIXIMAB, RECOMBINANT [Suspect]
     Route: 042
  3. INFLIXIMAB, RECOMBINANT [Suspect]
     Route: 042
  4. INFLIXIMAB, RECOMBINANT [Suspect]
     Route: 042
  5. INFLIXIMAB, RECOMBINANT [Suspect]
     Route: 042
  6. INFLIXIMAB, RECOMBINANT [Suspect]
     Route: 042
  7. INFLIXIMAB, RECOMBINANT [Suspect]
     Route: 042
  8. INFLIXIMAB, RECOMBINANT [Suspect]
     Indication: PSORIASIS
     Route: 042
  9. PLACEBO [Suspect]
     Indication: PSORIASIS
     Route: 042
  10. IBUDILAST (EYEVINAL) [Concomitant]
     Indication: SEASONAL ALLERGY
     Dosage: ^ADEQUATE DOSE^
     Route: 047
  11. ZYRTEC [Concomitant]
     Indication: SEASONAL ALLERGY
     Route: 048
  12. ANTEBATE [Concomitant]
     Indication: PSORIASIS
     Dosage: ^ADEQUATE DOSE^
     Route: 061

REACTIONS (1)
  - FIBROADENOMA OF BREAST [None]
